FAERS Safety Report 15611167 (Version 2)
Quarter: 2018Q4

REPORT INFORMATION
  Report Type: Spontaneous
  Country: RO (occurrence: RO)
  Receive Date: 20181113
  Receipt Date: 20181212
  Transmission Date: 20190205
  Serious: Yes (Other)
  Sender: FDA-Public Use
  Company Number: RO-ROCHE-2128572

PATIENT
  Age: 65 Year
  Sex: Male

DRUGS (2)
  1. CHLORAMBUCIL [Concomitant]
     Active Substance: CHLORAMBUCIL
     Indication: CHRONIC LYMPHOCYTIC LEUKAEMIA
     Route: 065
     Dates: start: 20180521
  2. GAZYVARO [Suspect]
     Active Substance: OBINUTUZUMAB
     Indication: CHRONIC LYMPHOCYTIC LEUKAEMIA
     Dosage: DAY 1: 100 MG, DAY 2: 900 MG
     Route: 042
     Dates: start: 20180521, end: 201810

REACTIONS (2)
  - Infusion related reaction [Recovered/Resolved]
  - Hepatitis C [Unknown]

NARRATIVE: CASE EVENT DATE: 20180521
